FAERS Safety Report 8607312 (Version 2)
Quarter: 2013Q3

REPORT INFORMATION
  Report Type: Spontaneous
  Country: US (occurrence: US)
  Receive Date: 20120611
  Receipt Date: 20130722
  Transmission Date: 20140515
  Serious: Yes (Hospitalization, Disabling, Other)
  Sender: FDA-Public Use
  Company Number: US-ASTRAZENECA-2012SE34757

PATIENT
  Age: 685 Month
  Sex: Female
  Weight: 87.1 kg

DRUGS (15)
  1. NEXIUM [Suspect]
     Indication: GASTROOESOPHAGEAL REFLUX DISEASE
     Dosage: ONCE A DAY
     Route: 048
     Dates: start: 1992, end: 2010
  2. NEXIUM [Suspect]
     Indication: GASTROOESOPHAGEAL REFLUX DISEASE
     Route: 048
     Dates: start: 2007
  3. PRILOSEC OTC [Suspect]
     Route: 048
  4. PREVACID [Concomitant]
  5. ZANTAC [Concomitant]
  6. TAGAMET [Concomitant]
  7. PEPCID [Concomitant]
  8. LISINOPRIL [Concomitant]
     Indication: BLOOD PRESSURE ABNORMAL
  9. LEVOTHYROXINE [Concomitant]
     Indication: THYROID DISORDER
  10. LIVALO [Concomitant]
     Indication: BLOOD CHOLESTEROL ABNORMAL
  11. FISH OIL [Concomitant]
  12. VITAMIN  B12 [Concomitant]
  13. CENTRUM VITAMIN [Concomitant]
  14. CALCIUM [Concomitant]
  15. POTASSIUM GLUCONATE [Concomitant]

REACTIONS (10)
  - Pain in extremity [Unknown]
  - Carpal tunnel syndrome [Unknown]
  - Lymphoma [Unknown]
  - Back pain [Unknown]
  - Osteoporosis [Unknown]
  - Arthritis [Unknown]
  - Multiple fractures [Unknown]
  - Cardiovascular disorder [Unknown]
  - Spinal disorder [Unknown]
  - Depression [Unknown]
